FAERS Safety Report 8113743-3 (Version None)
Quarter: 2012Q1

REPORT INFORMATION
  Report Type: 
  Country: None (occurrence: None)
  Receive Date: 20120203
  Receipt Date: 20120201
  Transmission Date: 20120608
  Serious: Yes (Life-Threatening, Hospitalization)
  Sender: FDA-Public Use
  Company Number: US-MILLENNIUM PHARMACEUTICALS, INC.-2012-00712

PATIENT
  Age: 18 Year
  Sex: Male
  Weight: 56.5 kg

DRUGS (8)
  1. CYTARABINE [Suspect]
     Indication: ACUTE MYELOID LEUKAEMIA
     Dosage: 70 MG, CYCLIC
     Route: 037
     Dates: start: 20110819, end: 20120108
  2. CYTARABINE [Suspect]
     Dosage: 100 MG/M2, UNK
     Route: 042
     Dates: start: 20110819, end: 20120108
  3. DAUNORUBICIN HYDROCHLORIDE [Suspect]
     Indication: ACUTE MYELOID LEUKAEMIA
     Dosage: 50 MG/M2, CYCLIC
     Route: 042
     Dates: start: 20110819, end: 20110824
  4. MITOXANTRONE HYDROCHLORIDE [Suspect]
     Indication: ACUTE MYELOID LEUKAEMIA
     Dosage: 12 MG/M2, CYCLIC
     Route: 042
     Dates: start: 20110819, end: 20120110
  5. VELCADE [Suspect]
     Indication: ACUTE MYELOID LEUKAEMIA
     Dosage: 1.3 MG/M2, CYCLIC
     Route: 040
     Dates: start: 20110819, end: 20120104
  6. ETOPOSIDE [Suspect]
     Dosage: 150 MG/M2, CYCLIC
     Route: 042
     Dates: start: 20110819
  7. CYTARABINE [Suspect]
     Dosage: 1000 MG/M2, UNK
     Route: 042
     Dates: start: 20110819, end: 20120108
  8. ETOPOSIDE [Suspect]
     Indication: ACUTE MYELOID LEUKAEMIA
     Dosage: 100 MG/M2, CYCLIC
     Route: 042
     Dates: start: 20110819

REACTIONS (4)
  - PERIPHERAL SENSORY NEUROPATHY [None]
  - HYPOTENSION [None]
  - HYPOTHYROIDISM [None]
  - SECONDARY ADRENOCORTICAL INSUFFICIENCY [None]
